FAERS Safety Report 7804547-7 (Version None)
Quarter: 2011Q4

REPORT INFORMATION
  Report Type: 
  Country: None (occurrence: None)
  Receive Date: 20111010
  Receipt Date: 20110928
  Transmission Date: 20120403
  Serious: Yes (Hospitalization)
  Sender: FDA-Public Use
  Company Number: PHHY2011FR86949

PATIENT
  Sex: Female

DRUGS (9)
  1. RASILEZ [Suspect]
     Indication: HYPERTENSION
     Dosage: 300 MG, DAILY
     Dates: start: 20110801
  2. DIAMICRON [Concomitant]
     Indication: DIABETES MELLITUS
  3. METHIMAZOLE [Suspect]
     Dosage: UNK
     Dates: start: 20110601
  4. AN UNSPECIFIED STATIN [Concomitant]
  5. METHIMAZOLE [Suspect]
     Indication: THYROID DISORDER
     Dosage: UNK
     Dates: start: 20110201
  6. GLUCOPHAGE [Concomitant]
     Indication: DIABETES MELLITUS
     Dosage: UNK
  7. FELODIPINE [Concomitant]
     Indication: HYPERTENSION
  8. ESIDRIX [Concomitant]
     Indication: HYPERTENSION
     Dosage: UNK
  9. VOLTAREN [Concomitant]

REACTIONS (2)
  - HAEMATOMA [None]
  - PANCYTOPENIA [None]
